FAERS Safety Report 16054723 (Version 1)
Quarter: 2019Q1

REPORT INFORMATION
  Report Type: Spontaneous
  Country: ES (occurrence: ES)
  Receive Date: 20190309
  Receipt Date: 20190309
  Transmission Date: 20190418
  Serious: Yes (Other)
  Sender: FDA-Public Use
  Company Number: PHHY2019ES049195

PATIENT
  Age: 7 Month
  Sex: Female

DRUGS (6)
  1. ESPIRONOLACTONA [Interacting]
     Active Substance: SPIRONOLACTONE
     Indication: HYPERTENSION
     Dosage: 10 MG, Q12H
     Route: 048
     Dates: start: 20170704
  2. FUROSEMIDA [Interacting]
     Active Substance: FUROSEMIDE
     Indication: OEDEMA
     Dosage: 3 MG, Q4H
     Route: 042
     Dates: start: 20170710, end: 20170713
  3. ENALAPRIL MALEATE. [Interacting]
     Active Substance: ENALAPRIL MALEATE
     Indication: HYPERTENSION
     Dosage: 1 MG, QD
     Route: 048
     Dates: start: 20170711, end: 20170714
  4. AMLODIPINE [Suspect]
     Active Substance: AMLODIPINE BESYLATE
     Indication: HYPERTENSION
     Dosage: 1 MG, Q12H
     Route: 048
     Dates: start: 20170703
  5. VANCOMICINA [Interacting]
     Active Substance: VANCOMYCIN
     Indication: INFECTION
     Dosage: 70 MG, Q8H
     Route: 042
     Dates: start: 20170704, end: 20170711
  6. FOSCARNET SODIQUE [Interacting]
     Active Substance: FOSCARNET SODIUM
     Indication: CYTOMEGALOVIRUS INFECTION
     Dosage: 300 MG, Q8H
     Route: 042
     Dates: start: 20170710, end: 20170713

REACTIONS (1)
  - Acute kidney injury [Recovered/Resolved]

NARRATIVE: CASE EVENT DATE: 20170712
